FAERS Safety Report 6668475-5 (Version None)
Quarter: 2010Q2

REPORT INFORMATION
  Report Type: 
  Country: None (occurrence: None)
  Receive Date: 20100406
  Receipt Date: 20100326
  Transmission Date: 20101027
  Serious: Yes (Hospitalization, Other)
  Sender: FDA-Public Use
  Company Number: PHHY2010CA09746

PATIENT
  Sex: Female

DRUGS (1)
  1. CLOZARIL [Suspect]
     Indication: SCHIZOPHRENIA
     Dosage: UNK
     Dates: start: 20091029

REACTIONS (5)
  - ANKLE FRACTURE [None]
  - FALL [None]
  - HALLUCINATION [None]
  - LUNG DISORDER [None]
  - SURGERY [None]
